FAERS Safety Report 13572046 (Version 1)
Quarter: 2017Q2

REPORT INFORMATION
  Report Type: Spontaneous
  Country: US (occurrence: US)
  Receive Date: 20170523
  Receipt Date: 20170523
  Transmission Date: 20170830
  Serious: No
  Sender: FDA-Public Use
  Company Number: US-ACCORD-041715

PATIENT
  Age: 79 Year
  Sex: Male

DRUGS (3)
  1. VENLAFAXINE/VENLAFAXINE HYDROCHLORIDE [Concomitant]
     Dosage: STRENGTH 75 MG
  2. CITALOPRAM [Concomitant]
     Active Substance: CITALOPRAM HYDROBROMIDE
     Dosage: STRENGTH 40 MG
  3. QUETIAPINE ACCORD [Suspect]
     Active Substance: QUETIAPINE
     Indication: DEPRESSION
     Dosage: STRENGTH 50 MG, BOTTLES OF 100???INITIALLY RECEIVED 50 MG DOSE THEN INCREASED TO 100 MG.
     Route: 048
     Dates: start: 201604

REACTIONS (2)
  - Drug ineffective [Unknown]
  - Product substitution issue [Unknown]

NARRATIVE: CASE EVENT DATE: 201604
